FAERS Safety Report 5835414-6 (Version None)
Quarter: 2008Q3

REPORT INFORMATION
  Report Type: 
  Country: None (occurrence: None)
  Receive Date: 20080804
  Receipt Date: 20080723
  Transmission Date: 20090109
  Serious: Yes (Other)
  Sender: FDA-Public Use
  Company Number: 08H-163-0314643-00

PATIENT
  Age: 70 Year
  Sex: Male

DRUGS (8)
  1. VANCOMYCIN [Suspect]
     Indication: PERIHEPATIC ABSCESS
  2. VANCOMYCIN [Suspect]
     Indication: SEPSIS
  3. LEVOFLOXACIN [Concomitant]
  4. METRONIDAZOLE [Concomitant]
  5. ERTAPENEM (ERTAPENEM) [Concomitant]
  6. MEROPENEM (MEROPENEM) [Concomitant]
  7. LINEZOLID [Concomitant]
  8. CASPOFUNGIN ACETATE (CASPOFUNGIN ACETATE) [Concomitant]

REACTIONS (6)
  - LINEAR IGA DISEASE [None]
  - NEUTROPENIA [None]
  - RASH MORBILLIFORM [None]
  - SHOCK [None]
  - VASCULITIS [None]
  - WHITE BLOOD CELL COUNT DECREASED [None]
